FAERS Safety Report 5664336-9 (Version None)
Quarter: 2008Q1

REPORT INFORMATION
  Report Type: 
  Country: None (occurrence: None)
  Receive Date: 20080312
  Receipt Date: 20080306
  Transmission Date: 20080703
  Serious: No
  Sender: FDA-Public Use
  Company Number: 002#2#2008-00085

PATIENT
  Age: 45 Year
  Sex: Male
  Weight: 74.8435 kg

DRUGS (5)
  1. NEUPRO [Suspect]
     Indication: DRUG USE FOR UNKNOWN INDICATION
     Dosage: 2MG/24H,1 IN 1 D, TRANSDERMAL; 4MG/24H,1IN 1 D, TRANSDERMAL; 6MG/24H,1 IN 1 D, TRANSDERMAL
     Route: 062
     Dates: start: 20080213, end: 20080219
  2. NEUPRO [Suspect]
     Indication: DRUG USE FOR UNKNOWN INDICATION
     Dosage: 2MG/24H,1 IN 1 D, TRANSDERMAL; 4MG/24H,1IN 1 D, TRANSDERMAL; 6MG/24H,1 IN 1 D, TRANSDERMAL
     Route: 062
     Dates: start: 20080213, end: 20080219
  3. NEUPRO [Suspect]
     Indication: DRUG USE FOR UNKNOWN INDICATION
     Dosage: 2MG/24H,1 IN 1 D, TRANSDERMAL; 4MG/24H,1IN 1 D, TRANSDERMAL; 6MG/24H,1 IN 1 D, TRANSDERMAL
     Route: 062
     Dates: start: 20080220, end: 20080226
  4. NEUPRO [Suspect]
     Indication: DRUG USE FOR UNKNOWN INDICATION
     Dosage: 2MG/24H,1 IN 1 D, TRANSDERMAL; 4MG/24H,1IN 1 D, TRANSDERMAL; 6MG/24H,1 IN 1 D, TRANSDERMAL
     Route: 062
     Dates: start: 20080227
  5. HYDROCORTISONE [Concomitant]

REACTIONS (2)
  - DRUG INEFFECTIVE [None]
  - PHARMACEUTICAL PRODUCT COMPLAINT [None]
